FAERS Safety Report 23334941 (Version 3)
Quarter: 2024Q1

REPORT INFORMATION
  Report Type: Spontaneous
  Country: DE (occurrence: DE)
  Receive Date: 20231225
  Receipt Date: 20240327
  Transmission Date: 20240410
  Serious: Yes (Hospitalization, Other)
  Sender: FDA-Public Use
  Company Number: DE-BRISTOL-MYERS SQUIBB COMPANY-2023-178112

PATIENT
  Age: 65 Year
  Sex: Male
  Weight: 95 kg

DRUGS (14)
  1. OXALIPLATIN [Suspect]
     Active Substance: OXALIPLATIN
     Indication: Gastric cancer
     Dosage: 190 MILLIGRAM, EVERY 2 WEEKS
     Route: 042
     Dates: start: 20230517
  2. CAPECITABINE [Suspect]
     Active Substance: CAPECITABINE
     Indication: Gastric cancer
     Dosage: 2000 MILLIGRAM
     Route: 048
     Dates: start: 20230824
  3. CAPECITABINE [Suspect]
     Active Substance: CAPECITABINE
     Dosage: 4000 MILLIGRAM, TWO TIMES A DAY
     Route: 048
     Dates: start: 20230824
  4. FLUOROURACIL [Suspect]
     Active Substance: FLUOROURACIL
     Indication: Gastric cancer
     Dosage: 5200 MILLIGRAM, EVERY 2 WEEKS
     Route: 042
     Dates: start: 20230517
  5. OPDIVO [Suspect]
     Active Substance: NIVOLUMAB
     Indication: Gastric cancer
     Dosage: 240 MILLIGRAM, EVERY 2 WEEKS
     Route: 042
     Dates: start: 20230517
  6. DEXAMETHASONE [Concomitant]
     Active Substance: DEXAMETHASONE
     Indication: Prophylaxis
     Dosage: 4 MILLIGRAM (0.33 DAY)
     Route: 048
     Dates: start: 20230503
  7. DEXAMETHASONE [Concomitant]
     Active Substance: DEXAMETHASONE
     Dosage: 8 MILLIGRAM, EVERY WEEK
     Route: 042
     Dates: start: 20230517
  8. ELIQUIS [Concomitant]
     Active Substance: APIXABAN
     Indication: Prophylaxis
     Dosage: 5 MILLIGRAM, TWO TIMES A DAY
     Route: 048
     Dates: start: 20230824
  9. GRANISETRON [Concomitant]
     Active Substance: GRANISETRON
     Indication: Prophylaxis
     Dosage: 3 MILLIGRAM, EVERY WEEK
     Route: 042
     Dates: start: 20230517
  10. METOPROLOL SUCCINATE [Concomitant]
     Active Substance: METOPROLOL SUCCINATE
     Indication: Product used for unknown indication
     Dosage: 47.5 MILLIGRAM, ONCE A DAY
     Route: 048
  11. MCP [Concomitant]
     Active Substance: METOCLOPRAMIDE HYDROCHLORIDE
     Indication: Prophylaxis
     Dosage: 10 MILLIGRAM (0.33 DAY)
     Route: 048
     Dates: start: 20230503
  12. PANTOZOL [Concomitant]
     Active Substance: PANTOPRAZOLE SODIUM
     Indication: Product used for unknown indication
     Dosage: 40 MILLIGRAM, ONCE A DAY
     Route: 048
  13. PRASUGREL [Concomitant]
     Active Substance: PRASUGREL
     Indication: Product used for unknown indication
     Dosage: 10 MILLIGRAM, ONCE A DAY
     Route: 048
  14. HYDROCHLOROTHIAZIDE\TRIAMTERENE [Concomitant]
     Active Substance: HYDROCHLOROTHIAZIDE\TRIAMTERENE
     Indication: Product used for unknown indication
     Dosage: TRIAMTEREN 50MG/HCT 25MG (ONCE A DAY)
     Route: 048

REACTIONS (5)
  - Immune-mediated thyroiditis [Unknown]
  - Acute kidney injury [Recovered/Resolved]
  - Autoimmune hypothyroidism [Unknown]
  - Hypothyroidism [Unknown]
  - Depressed mood [Unknown]

NARRATIVE: CASE EVENT DATE: 20231011
